FAERS Safety Report 7386667-7 (Version None)
Quarter: 2011Q1

REPORT INFORMATION
  Report Type: 
  Country: None (occurrence: None)
  Receive Date: 20110329
  Receipt Date: 20110329
  Transmission Date: 20110831
  Serious: Yes (Hospitalization)
  Sender: FDA-Public Use
  Company Number: None

PATIENT
  Sex: Female
  Weight: 79.7424 kg

DRUGS (3)
  1. CISPLATIN [Suspect]
     Indication: BREAST CANCER
     Dosage: 20MG/M2/70MG/M2 IV QWEEK
     Route: 042
     Dates: start: 20101231, end: 20110304
  2. RAD001 [Suspect]
     Indication: BREAST CANCER
     Dosage: 5 MG DAILY
     Dates: start: 20101231, end: 20110323
  3. TAXOL [Suspect]

REACTIONS (3)
  - ABDOMINAL PAIN UPPER [None]
  - METASTATIC PAIN [None]
  - INFECTION [None]
